FAERS Safety Report 18979433 (Version 1)
Quarter: 2021Q1

REPORT INFORMATION
  Report Type: Spontaneous
  Country: US (occurrence: US)
  Receive Date: 20210308
  Receipt Date: 20210308
  Transmission Date: 20210420
  Serious: No
  Sender: FDA-Public Use
  Company Number: ALC2020US000859

PATIENT

DRUGS (1)
  1. ZADITOR [Suspect]
     Active Substance: KETOTIFEN FUMARATE
     Indication: EYELID IRRITATION
     Dosage: UNK
     Route: 065

REACTIONS (1)
  - Eye irritation [Unknown]
